FAERS Safety Report 8204945-6 (Version None)
Quarter: 2012Q1

REPORT INFORMATION
  Report Type: 
  Country: None (occurrence: None)
  Receive Date: 20120313
  Receipt Date: 20120306
  Transmission Date: 20120608
  Serious: Yes (Other)
  Sender: FDA-Public Use
  Company Number: GB-PFIZER INC-2012055634

PATIENT
  Age: 5 Year
  Sex: Male

DRUGS (1)
  1. REFACTO [Suspect]

REACTIONS (1)
  - FACTOR VIII INHIBITION [None]
